FAERS Safety Report 21190713 (Version 1)
Quarter: 2022Q3

REPORT INFORMATION
  Report Type: Spontaneous
  Country: US (occurrence: None)
  Receive Date: 20220809
  Receipt Date: 20220809
  Transmission Date: 20221027
  Serious: Yes (Other)
  Sender: FDA-Public Use
  Company Number: None

PATIENT
  Age: 32 Year
  Sex: Female

DRUGS (1)
  1. SECRET OUTLAST XTEND TECHNOLOGY CLEAR UNSCENTED [Suspect]
     Active Substance: ALUMINUM ZIRCONIUM OCTACHLOROHYDREX GLY
     Indication: Personal hygiene
     Dosage: FREQUENCY : DAILY;?
     Route: 061

REACTIONS (5)
  - Skin discolouration [None]
  - Application site reaction [None]
  - Application site rash [None]
  - Application site pruritus [None]
  - Application site cyst [None]

NARRATIVE: CASE EVENT DATE: 20220126
